FAERS Safety Report 10361726 (Version 1)
Quarter: 2014Q3

REPORT INFORMATION
  Report Type: Spontaneous
  Country: US (occurrence: US)
  Receive Date: 20140805
  Receipt Date: 20140805
  Transmission Date: 20150326
  Serious: No
  Sender: FDA-Public Use
  Company Number: US-THROMBOGENICS INC-JET-2014-350

PATIENT

DRUGS (1)
  1. JETREA [Suspect]
     Active Substance: OCRIPLASMIN
     Indication: PRODUCT USED FOR UNKNOWN INDICATION
     Dosage: 0.125 MG, ONE TIME DOSE
     Route: 031

REACTIONS (8)
  - Visual impairment [Not Recovered/Not Resolved]
  - Visual field defect [Unknown]
  - Visual impairment [Unknown]
  - Photopsia [Recovered/Resolved]
  - Vision blurred [Unknown]
  - Chromatopsia [Unknown]
  - Visual impairment [Recovering/Resolving]
  - Macular oedema [Unknown]
